FAERS Safety Report 19390935 (Version 3)
Quarter: 2021Q3

REPORT INFORMATION
  Report Type: Spontaneous
  Country: DE (occurrence: DE)
  Receive Date: 20210608
  Receipt Date: 20210702
  Transmission Date: 20211014
  Serious: Yes (Other)
  Sender: FDA-Public Use
  Company Number: NVSC2021DE124783

PATIENT
  Sex: Female

DRUGS (1)
  1. ACICLOVIR 800 ? 1 A PHARMA [Suspect]
     Active Substance: ACYCLOVIR
     Indication: PRODUCT USED FOR UNKNOWN INDICATION
     Dosage: UNK
     Route: 048

REACTIONS (3)
  - Product use complaint [Unknown]
  - Product taste abnormal [Unknown]
  - Foreign body in throat [Unknown]
